FAERS Safety Report 13101295 (Version 2)
Quarter: 2017Q1

REPORT INFORMATION
  Report Type: Spontaneous
  Country: US (occurrence: US)
  Receive Date: 20170110
  Receipt Date: 20170201
  Transmission Date: 20170428
  Serious: Yes (Hospitalization)
  Sender: FDA-Public Use
  Company Number: US-DRREDDYS-USA/USA/17/0086205

PATIENT
  Age: 23 Year
  Sex: Female

DRUGS (2)
  1. TACROLIMUS. [Suspect]
     Active Substance: TACROLIMUS
     Indication: PRODUCT USED FOR UNKNOWN INDICATION
     Route: 065
  2. AUGMENTIN [Suspect]
     Active Substance: AMOXICILLIN\CLAVULANATE POTASSIUM
     Indication: URINARY TRACT INFECTION
     Route: 065

REACTIONS (9)
  - Syncope [Unknown]
  - Thrombotic microangiopathy [Unknown]
  - Anaemia [Unknown]
  - Deep vein thrombosis [Unknown]
  - Haemoglobin decreased [Unknown]
  - White blood cell count decreased [Unknown]
  - Pulmonary embolism [Unknown]
  - Platelet count decreased [Unknown]
  - Haemolysis [Unknown]

NARRATIVE: CASE EVENT DATE: 201504
